FAERS Safety Report 5420525-X (Version None)
Quarter: 2007Q3

REPORT INFORMATION
  Report Type: 
  Country: None (occurrence: None)
  Receive Date: 20070821
  Receipt Date: 20060718
  Transmission Date: 20080115
  Serious: No
  Sender: FDA-Public Use
  Company Number: US-KINGPHARMUSA00001-K200600792

PATIENT

DRUGS (3)
  1. CYTOMEL [Suspect]
     Dosage: 5 MCG, UNK
     Route: 048
     Dates: end: 20060101
  2. CYTOMEL [Suspect]
     Dosage: UNK, UNK
     Dates: start: 20060101, end: 20060101
  3. CYTOMEL [Suspect]
     Dosage: 5 MCG, UNK
     Dates: start: 20060101

REACTIONS (2)
  - DRUG INEFFECTIVE [None]
  - MALAISE [None]
